FAERS Safety Report 7670731-9 (Version None)
Quarter: 2011Q3

REPORT INFORMATION
  Report Type: 
  Country: None (occurrence: None)
  Receive Date: 20110809
  Receipt Date: 20110803
  Transmission Date: 20111222
  Serious: No
  Sender: FDA-Public Use
  Company Number: US-BIOGENIDEC-2011BI029397

PATIENT
  Age: 53 Year
  Sex: Male

DRUGS (1)
  1. AVONEX [Suspect]
     Indication: MULTIPLE SCLEROSIS
     Route: 030
     Dates: start: 20091208

REACTIONS (5)
  - HYPOAESTHESIA [None]
  - HYPERTENSION [None]
  - WEIGHT DECREASED [None]
  - PARAESTHESIA [None]
  - INJECTION SITE PAIN [None]
